FAERS Safety Report 10414834 (Version 2)
Quarter: 2014Q3

REPORT INFORMATION
  Report Type: Spontaneous
  Country: US (occurrence: US)
  Receive Date: 20140828
  Receipt Date: 20140828
  Transmission Date: 20150326
  Serious: Yes (Hospitalization, Other)
  Sender: FDA-Public Use
  Company Number: US-009507513-2011SP039038

PATIENT
  Sex: Female
  Weight: 79.38 kg

DRUGS (2)
  1. MELATONIN [Concomitant]
     Active Substance: MELATONIN
     Indication: PHYTOTHERAPY
     Dosage: UNK UNK, QD
  2. NUVARING [Suspect]
     Active Substance: ETHINYL ESTRADIOL\ETONOGESTREL
     Indication: CONTRACEPTION
     Dosage: UNK
     Route: 067
     Dates: start: 2002, end: 200908

REACTIONS (8)
  - Dyspnoea [Unknown]
  - Anxiety [Unknown]
  - Breast disorder [Unknown]
  - Human papilloma virus test positive [Unknown]
  - Pulmonary embolism [Unknown]
  - Pain [Unknown]
  - Chest pain [Unknown]
  - Depression [Unknown]

NARRATIVE: CASE EVENT DATE: 200608
